FAERS Safety Report 9455885 (Version 1)
Quarter: 2013Q3

REPORT INFORMATION
  Report Type: Spontaneous
  Country: SE (occurrence: None)
  Receive Date: 20130808
  Receipt Date: 20130808
  Transmission Date: 20140515
  Serious: Yes (Hospitalization)
  Sender: FDA-Public Use
  Company Number: GER/SWE/13/0033921

PATIENT
  Age: 87 Year
  Sex: Female

DRUGS (13)
  1. CLOPIDOGREL (CLOPIDOGREL) [Suspect]
     Indication: PRODUCT USED FOR UNKNOWN INDICATION
     Dates: start: 20130314, end: 20130415
  2. TROMBYL [Suspect]
     Indication: PRODUCT USED FOR UNKNOWN INDICATION
     Dosage: 1 D
     Dates: start: 20050414
  3. NOVORAPID [Concomitant]
  4. LEVAXIN [Concomitant]
  5. SIMVASTATIN [Concomitant]
  6. KALCIPOS-DFORTE [Concomitant]
  7. ALENDRONATE SODIUM [Concomitant]
  8. PANODIL [Concomitant]
  9. SALURES [Concomitant]
  10. OVESTERIN [Concomitant]
  11. ENALAPRIL [Concomitant]
  12. METOPROLOL [Concomitant]
  13. NOVOMIX [Concomitant]

REACTIONS (6)
  - Anaemia [None]
  - Gastrointestinal haemorrhage [None]
  - Renal impairment [None]
  - Myocardial infarction [None]
  - Chest discomfort [None]
  - Neoplasm malignant [None]
